FAERS Safety Report 12721532 (Version 2)
Quarter: 2016Q4

REPORT INFORMATION
  Report Type: Spontaneous
  Country: US (occurrence: US)
  Receive Date: 20160907
  Receipt Date: 20161013
  Transmission Date: 20170207
  Serious: No
  Sender: FDA-Public Use
  Company Number: US-PFIZER INC-2016417364

PATIENT
  Age: 69 Year
  Sex: Male
  Weight: 95.25 kg

DRUGS (1)
  1. PREGABALIN. [Suspect]
     Active Substance: PREGABALIN
     Indication: PAIN
     Dosage: 50 MG, 3X/DAY

REACTIONS (4)
  - Dysstasia [Unknown]
  - Tremor [Unknown]
  - Drug ineffective [Unknown]
  - Gait disturbance [Unknown]
